FAERS Safety Report 8433397-6 (Version None)
Quarter: 2012Q2

REPORT INFORMATION
  Report Type: 
  Country: None (occurrence: None)
  Receive Date: 20120323
  Receipt Date: 20110930
  Transmission Date: 20120825
  Serious: Yes (Hospitalization)
  Sender: FDA-Public Use
  Company Number: 163-21880-11083258

PATIENT
  Age: 71 Year
  Sex: Female
  Weight: 30.0281 kg

DRUGS (3)
  1. REVLIMID [Suspect]
     Indication: MYELODYSPLASTIC SYNDROME
     Dosage: 5 MG, 1 IN 1 D, PO 1.6667 MG, 1 IN 3 D, PO
     Dates: start: 20070720, end: 20080809
  2. REVLIMID [Suspect]
     Indication: MYELODYSPLASTIC SYNDROME
     Dosage: 5 MG, 1 IN 1 D, PO 1.6667 MG, 1 IN 3 D, PO
     Dates: start: 20080828
  3. REVLIMID [Suspect]

REACTIONS (3)
  - MALAISE [None]
  - SYNCOPE [None]
  - FATIGUE [None]
